FAERS Safety Report 21207454 (Version 3)
Quarter: 2022Q3

REPORT INFORMATION
  Report Type: Spontaneous
  Country: US (occurrence: US)
  Receive Date: 20220812
  Receipt Date: 20220829
  Transmission Date: 20221027
  Serious: No
  Sender: FDA-Public Use
  Company Number: US-PFIZER INC-202201051628

PATIENT
  Age: 72 Year
  Sex: Female
  Weight: 56.7 kg

DRUGS (4)
  1. PAXLOVID [Suspect]
     Active Substance: NIRMATRELVIR\RITONAVIR
     Indication: COVID-19 treatment
     Dosage: 3 DF, 2X/DAY (300MG 100MG, TOOK THREE IN THE MORNING AND THREE AT NIGHT BY MOUTH)
     Route: 048
     Dates: start: 20220807
  2. LOVASTATIN [Suspect]
     Active Substance: LOVASTATIN
     Indication: Blood cholesterol
     Dosage: FOUR TIMES A WEEK
  3. CLONAZEPAM [Concomitant]
     Active Substance: CLONAZEPAM
     Indication: Insomnia
     Dosage: USUALLY TAKES IT AT NIGHT TO SLEEP
  4. CELECOXIB [Concomitant]
     Active Substance: CELECOXIB
     Indication: Anxiety
     Dosage: 10 MG, DAILY, ONCE IN THE MORNING EVERY DAY
     Dates: start: 20220629

REACTIONS (4)
  - Contraindicated product administered [Not Recovered/Not Resolved]
  - Taste disorder [Not Recovered/Not Resolved]
  - Nausea [Not Recovered/Not Resolved]
  - Eating disorder [Not Recovered/Not Resolved]

NARRATIVE: CASE EVENT DATE: 20220807
